FAERS Safety Report 23448930 (Version 1)
Quarter: 2024Q1

REPORT INFORMATION
  Report Type: Spontaneous
  Country: US (occurrence: US)
  Receive Date: 20240128
  Receipt Date: 20240128
  Transmission Date: 20240409
  Serious: No
  Sender: FDA-Public Use
  Company Number: US-JNJFOC-20240164119

PATIENT
  Age: 26 Year
  Sex: Female

DRUGS (2)
  1. SPRAVATO [Suspect]
     Active Substance: ESKETAMINE
     Indication: Product used for unknown indication
     Dates: start: 20210921
  2. ZOFRAN [Concomitant]
     Active Substance: ONDANSETRON HYDROCHLORIDE

REACTIONS (2)
  - Nausea [Unknown]
  - Vomiting [Unknown]
